FAERS Safety Report 23494355 (Version 1)
Quarter: 2024Q1

REPORT INFORMATION
  Report Type: Report from Study
  Country: US (occurrence: US)
  Receive Date: 20240207
  Receipt Date: 20240207
  Transmission Date: 20240410
  Serious: No
  Sender: FDA-Public Use
  Company Number: US-ORG100014127-2023001068

PATIENT
  Age: 67 Year
  Sex: Female

DRUGS (9)
  1. LYSODREN [Suspect]
     Active Substance: MITOTANE
     Indication: Adrenal gland cancer
     Dosage: 1 TABLETS TWICE DAILY
     Route: 048
     Dates: start: 20231017
  2. LYSODREN [Suspect]
     Active Substance: MITOTANE
     Indication: Adrenal gland cancer
     Dosage: 1 TABLETS TWICE DAILY
     Route: 048
  3. Anastrozole 1 mg tablet [Concomitant]
     Indication: Product used for unknown indication
  4. Eliquis tablet 5mg [Concomitant]
     Indication: Product used for unknown indication
  5. Losartan potassium tablet 25mg [Concomitant]
     Indication: Product used for unknown indication
  6. Pantoprazole tablet 40mg [Concomitant]
     Indication: Product used for unknown indication
  7. Potassium chloride capsule 10meq ER [Concomitant]
     Indication: Product used for unknown indication
  8. spironolactone tablet 25mg [Concomitant]
     Indication: Product used for unknown indication
  9. Tylenol 8HR tablet 650mg [Concomitant]
     Indication: Product used for unknown indication

REACTIONS (1)
  - Adverse event [Recovered/Resolved]

NARRATIVE: CASE EVENT DATE: 20231109
